FAERS Safety Report 4518590-7 (Version None)
Quarter: 2004Q4

REPORT INFORMATION
  Report Type: 
  Country: None (occurrence: None)
  Receive Date: 20041203
  Receipt Date: 20040914
  Transmission Date: 20050328
  Serious: Yes (Hospitalization)
  Sender: FDA-Public Use
  Company Number: US-MERCK-0409USA01262

PATIENT
  Age: 54 Year
  Sex: Male
  Weight: 95 kg

DRUGS (1)
  1. VIOXX [Suspect]
     Indication: BACK PAIN
     Route: 048
     Dates: end: 20040101

REACTIONS (5)
  - CALCINOSIS [None]
  - CARDIAC DISORDER [None]
  - DYSPEPSIA [None]
  - HYPERTENSION [None]
  - NEPHROLITHIASIS [None]
